FAERS Safety Report 21789230 (Version 1)
Quarter: 2022Q4

REPORT INFORMATION
  Report Type: Spontaneous
  Country: AT (occurrence: AT)
  Receive Date: 20221228
  Receipt Date: 20221228
  Transmission Date: 20230112
  Serious: Yes (Other)
  Sender: FDA-Public Use
  Company Number: AT-002147023-NVSC2022AT299286

PATIENT
  Age: 73 Year
  Sex: Female

DRUGS (2)
  1. CARBOPLATIN [Suspect]
     Active Substance: CARBOPLATIN
     Indication: Bladder transitional cell carcinoma recurrent
     Dosage: 7 CYCLES, CYCLIC
     Route: 065
     Dates: start: 201508, end: 201604
  2. GEMCITABINE [Suspect]
     Active Substance: GEMCITABINE
     Indication: Bladder transitional cell carcinoma recurrent
     Dosage: 7 CYCLES, CYCLIC
     Route: 065
     Dates: start: 201508, end: 201604

REACTIONS (3)
  - Bladder transitional cell carcinoma recurrent [Unknown]
  - Malignant neoplasm progression [Unknown]
  - Product use in unapproved indication [Unknown]

NARRATIVE: CASE EVENT DATE: 20160401
